FAERS Safety Report 12613505 (Version 2)
Quarter: 2016Q4

REPORT INFORMATION
  Report Type: Spontaneous
  Country: US (occurrence: US)
  Receive Date: 20160802
  Receipt Date: 20161212
  Transmission Date: 20170207
  Serious: No
  Sender: FDA-Public Use
  Company Number: US-BAYER-2016-149265

PATIENT
  Age: 89 Year
  Sex: Female
  Weight: 65.76 kg

DRUGS (5)
  1. CHOLESTEROL [Concomitant]
     Active Substance: CHOLESTEROL
  2. CLARITIN [Suspect]
     Active Substance: LORATADINE
     Indication: NASOPHARYNGITIS
  3. CLARITIN [Suspect]
     Active Substance: LORATADINE
     Indication: NASAL PRURITUS
     Dosage: 1 DF, ONCE
     Route: 048
     Dates: start: 20161208, end: 20161208
  4. CLARITIN [Suspect]
     Active Substance: LORATADINE
     Indication: EYE PRURITUS
     Dosage: 1 DF, QD
     Route: 048
     Dates: start: 20160730, end: 2016
  5. CLARITIN [Suspect]
     Active Substance: LORATADINE
     Indication: HYPERSENSITIVITY

REACTIONS (3)
  - Somnolence [Unknown]
  - Eye disorder [Unknown]
  - Drug ineffective [None]

NARRATIVE: CASE EVENT DATE: 20160730
